FAERS Safety Report 20685725 (Version 1)
Quarter: 2022Q2

REPORT INFORMATION
  Report Type: Report from Study
  Country: US (occurrence: None)
  Receive Date: 20220407
  Receipt Date: 20220407
  Transmission Date: 20220721
  Serious: Yes (Hospitalization)
  Sender: FDA-Public Use
  Company Number: US-Eisai Medical Research-EC-2022-111020

PATIENT
  Age: 55 Year
  Sex: Female

DRUGS (1)
  1. LENVIMA [Suspect]
     Active Substance: LENVATINIB
     Indication: Renal cancer
     Route: 048
     Dates: start: 20220126, end: 202203

REACTIONS (3)
  - Cardiac failure [Unknown]
  - Tongue discomfort [Unknown]
  - Acne [Unknown]

NARRATIVE: CASE EVENT DATE: 20220101
